FAERS Safety Report 20504405 (Version 1)
Quarter: 2022Q1

REPORT INFORMATION
  Report Type: Report from Study
  Country: IE (occurrence: IE)
  Receive Date: 20220222
  Receipt Date: 20220222
  Transmission Date: 20220423
  Serious: Yes (Other)
  Sender: FDA-Public Use
  Company Number: IE-BEH-2022142443

PATIENT
  Sex: Male
  Weight: 64 kg

DRUGS (1)
  1. ZEMAIRA [Suspect]
     Active Substance: .ALPHA.1-PROTEINASE INHIBITOR HUMAN
     Indication: Alpha-1 antitrypsin deficiency
     Dosage: 3480 MILLIGRAM
     Route: 042

REACTIONS (4)
  - Vomiting [Unknown]
  - Diarrhoea [Unknown]
  - No adverse event [Unknown]
  - Therapy interrupted [Unknown]

NARRATIVE: CASE EVENT DATE: 20220217
